FAERS Safety Report 9900804 (Version 1)
Quarter: 2014Q1

REPORT INFORMATION
  Report Type: Report from Study
  Country: US (occurrence: US)
  Receive Date: 20140217
  Receipt Date: 20140217
  Transmission Date: 20141002
  Serious: Yes (Other)
  Sender: FDA-Public Use
  Company Number: US-ROCHE-1348193

PATIENT
  Sex: Male

DRUGS (16)
  1. AVASTIN [Suspect]
     Indication: DIABETIC RETINOPATHY
     Route: 065
  2. AVASTIN [Suspect]
     Indication: DIABETIC RETINAL OEDEMA
  3. DIOVAN HCT [Concomitant]
     Route: 065
  4. HUMALOG [Concomitant]
  5. LORATADINE [Concomitant]
  6. LUTEIN [Concomitant]
  7. MEGARED OMEGA-3 KRILL OIL [Concomitant]
  8. METOPROLOL TARTRATE [Concomitant]
     Route: 065
  9. OMEGA Q PLUS (FISH OIL) [Concomitant]
  10. CHONDROITIN/GLUCOSAMINE [Concomitant]
     Dosage: BRANB NAME: OSTEO BI-FLEX
     Route: 065
  11. RESVERATROL [Concomitant]
  12. SIMVASTATIN [Concomitant]
     Route: 065
  13. TESTOSTERONE [Concomitant]
  14. TROPICAMIDE [Concomitant]
     Route: 065
  15. PHENYLEPHRINE [Concomitant]
     Route: 065
  16. TRAVATAN Z [Concomitant]
     Dosage: 1 DROP BOTH EYES QHS
     Route: 065

REACTIONS (3)
  - Eye pruritus [Unknown]
  - Intraocular pressure increased [Unknown]
  - Off label use [Unknown]
